FAERS Safety Report 6409419-0 (Version None)
Quarter: 2009Q4

REPORT INFORMATION
  Report Type: 
  Country: None (occurrence: None)
  Receive Date: 20091021
  Receipt Date: 20091013
  Transmission Date: 20100525
  Serious: Yes (Hospitalization)
  Sender: FDA-Public Use
  Company Number: JP-AMGEN-US363556

PATIENT
  Sex: Female
  Weight: 34 kg

DRUGS (8)
  1. ENBREL [Suspect]
     Indication: RHEUMATOID ARTHRITIS
     Route: 058
     Dates: start: 20090117, end: 20090803
  2. PREDONINE [Concomitant]
     Indication: RHEUMATOID ARTHRITIS
     Route: 048
     Dates: start: 20081201, end: 20090727
  3. BONALON [Concomitant]
     Indication: OSTEOPOROSIS
     Route: 048
     Dates: end: 20090727
  4. MUCODYNE [Concomitant]
     Indication: BRONCHITIS
     Route: 048
     Dates: end: 20090727
  5. HYPEN [Concomitant]
     Indication: RHEUMATOID ARTHRITIS
     Route: 048
     Dates: end: 20090727
  6. MUCOSTA [Concomitant]
     Indication: GASTRITIS
     Route: 048
     Dates: end: 20090727
  7. RHEUMATREX [Concomitant]
     Route: 048
     Dates: start: 20081201, end: 20090727
  8. PARIET [Concomitant]
     Indication: GASTRITIS
     Route: 048
     Dates: end: 20090727

REACTIONS (4)
  - CARDIAC FAILURE [None]
  - CARDIOMEGALY [None]
  - DECREASED ACTIVITY [None]
  - MALAISE [None]
